FAERS Safety Report 7898952-0 (Version None)
Quarter: 2011Q4

REPORT INFORMATION
  Report Type: 
  Country: None (occurrence: None)
  Receive Date: 20111107
  Receipt Date: 20111101
  Transmission Date: 20120403
  Serious: Yes (Death, Hospitalization, Other)
  Sender: FDA-Public Use
  Company Number: US-ASTELLAS-2011US005144

PATIENT
  Sex: Male

DRUGS (8)
  1. MAGNESIUM [Concomitant]
     Indication: PRODUCT USED FOR UNKNOWN INDICATION
     Dosage: 250 MG, BID
     Route: 048
     Dates: start: 20100202, end: 20101120
  2. CORTICOSTEROID NOS [Suspect]
     Indication: PRODUCT USED FOR UNKNOWN INDICATION
     Dosage: UNK
     Route: 065
  3. HYDROXYZINE [Concomitant]
     Indication: PRODUCT USED FOR UNKNOWN INDICATION
     Dosage: 25 MG, PRN
     Route: 065
     Dates: start: 20091129, end: 20101120
  4. PRILOSEC [Concomitant]
     Indication: PRODUCT USED FOR UNKNOWN INDICATION
     Dosage: 40 MG, UID/QD
     Route: 065
     Dates: start: 20090929, end: 20101120
  5. ASPIRIN [Concomitant]
     Indication: ANTICOAGULANT THERAPY
     Dosage: 81 MG, UID/QD
     Route: 048
     Dates: start: 20080130, end: 20101120
  6. BENADRYL [Concomitant]
     Indication: PRURITUS
     Dosage: UNK
     Route: 065
     Dates: start: 20090527, end: 20101120
  7. HYDROCODONE BITARTRATE [Concomitant]
     Indication: PAIN
     Dosage: 10/325 UNK, UID/QD
     Route: 048
     Dates: start: 20100202, end: 20101120
  8. PROGRAF [Suspect]
     Indication: LIVER TRANSPLANT
     Dosage: 1.5 MG, BID
     Route: 048
     Dates: start: 20080130, end: 20101120

REACTIONS (17)
  - PORTAL SHUNT [None]
  - HYPERGLYCAEMIA [None]
  - ASCITES [None]
  - PULSE ABSENT [None]
  - HEPATITIS C [None]
  - TRANSPLANT FAILURE [None]
  - PERITONITIS BACTERIAL [None]
  - OSTEOPENIA [None]
  - COAGULOPATHY [None]
  - BLOOD PRESSURE SYSTOLIC DECREASED [None]
  - CONVULSION [None]
  - GASTROOESOPHAGEAL REFLUX DISEASE [None]
  - CARDIAC ARREST [None]
  - HAEMORRHAGE [None]
  - HEPATIC ENCEPHALOPATHY [None]
  - COMPLICATIONS OF TRANSPLANTED LIVER [None]
  - PNEUMONIA ASPIRATION [None]
